FAERS Safety Report 4932124-4 (Version None)
Quarter: 2006Q1

REPORT INFORMATION
  Report Type: 
  Country: None (occurrence: None)
  Receive Date: 20060303
  Receipt Date: 20060221
  Transmission Date: 20060701
  Serious: Yes (Other)
  Sender: FDA-Public Use
  Company Number: US-ROCHE-437698

PATIENT
  Age: 70 Year
  Sex: Female

DRUGS (5)
  1. TAMIFLU [Suspect]
     Route: 048
     Dates: start: 20060215, end: 20060221
  2. BENICAR [Concomitant]
     Route: 048
  3. FELODIPINE [Concomitant]
     Route: 048
  4. LABETALOL HCL [Concomitant]
     Route: 048
  5. PREMARIN [Concomitant]
     Indication: DRUG USE FOR UNKNOWN INDICATION

REACTIONS (3)
  - IRRITABILITY [None]
  - LIVER DISORDER [None]
  - MELAENA [None]
